FAERS Safety Report 14843463 (Version 2)
Quarter: 2025Q2

REPORT INFORMATION
  Report Type: Spontaneous
  Country: ES (occurrence: ES)
  Receive Date: 20180503
  Receipt Date: 20250422
  Transmission Date: 20250717
  Serious: Yes (Hospitalization, Other)
  Sender: MYLAN
  Company Number: ES-STADA-155074

PATIENT
  Age: 79 Year
  Sex: Male

DRUGS (7)
  1. MYCOPHENOLATE SODIUM [Suspect]
     Active Substance: MYCOPHENOLATE SODIUM
     Indication: Glomerulonephritis proliferative
     Dosage: 360 MILLIGRAM, BID
     Dates: start: 201105, end: 201106
  2. PREDNISONE [Suspect]
     Active Substance: PREDNISONE
     Indication: Glomerulonephritis proliferative
     Dosage: 60 MILLIGRAM, QD
  3. METHYLPREDNISOLONE [Suspect]
     Active Substance: METHYLPREDNISOLONE
     Indication: Glomerulonephritis proliferative
  4. CYCLOPHOSPHAMIDE [Suspect]
     Active Substance: CYCLOPHOSPHAMIDE
     Indication: Glomerulonephritis proliferative
     Dosage: 100 MILLIGRAM, QD
  5. RIFAMPIN [Concomitant]
     Active Substance: RIFAMPIN
     Indication: Type 2 lepra reaction
     Dosage: 300 MILLIGRAM, MONTHLY
  6. DAPSONE [Concomitant]
     Active Substance: DAPSONE
     Indication: Type 2 lepra reaction
     Dosage: 100 MILLIGRAM, QD
  7. CLOFAZIMINE [Concomitant]
     Active Substance: CLOFAZIMINE
     Indication: Type 2 lepra reaction
     Dosage: 50 MILLIGRAM, QD

REACTIONS (1)
  - Type 2 lepra reaction [Unknown]

NARRATIVE: CASE EVENT DATE: 20110801
